FAERS Safety Report 4375720-8 (Version None)
Quarter: 2004Q2

REPORT INFORMATION
  Report Type: 
  Country: None (occurrence: None)
  Receive Date: 20040608
  Receipt Date: 20030210
  Transmission Date: 20050107
  Serious: Yes (Other)
  Sender: FDA-Public Use
  Company Number: 200310465BCC

PATIENT
  Age: 60 Year
  Sex: Female
  Weight: 81.6475 kg

DRUGS (2)
  1. ALEVE [Suspect]
     Indication: MYALGIA
     Dosage: 220 MG, QD, ORAL
     Route: 048
     Dates: start: 20030204, end: 20030207
  2. LIPITOR [Concomitant]

REACTIONS (1)
  - HAEMATOCHEZIA [None]
